FAERS Safety Report 5116815-0 (Version None)
Quarter: 2006Q3

REPORT INFORMATION
  Report Type: 
  Country: None (occurrence: None)
  Receive Date: 20060928
  Receipt Date: 20060822
  Transmission Date: 20061208
  Serious: Yes (Death, Other)
  Sender: FDA-Public Use
  Company Number: GB-PURDUE-GBR_2006_0002447

PATIENT
  Age: 61 Year
  Sex: Male

DRUGS (8)
  1. OXYNORM [Suspect]
     Indication: BREAKTHROUGH PAIN
     Dosage: 100 MG, Q12H
     Route: 058
     Dates: start: 20060630
  2. OXYNORM [Suspect]
     Dosage: 30 MG, TWICE
     Route: 058
     Dates: start: 20060630, end: 20060630
  3. OXYNORM [Suspect]
     Dosage: 50 MG, QID
     Route: 058
     Dates: start: 20060629, end: 20060629
  4. OXYNORM [Suspect]
     Dosage: 20 MG, QID
     Route: 058
     Dates: start: 20060628, end: 20060628
  5. OXYNORM [Suspect]
     Dosage: UNK, UNK
     Route: 058
     Dates: start: 20060627, end: 20060627
  6. MIDAZOLAM HCL [Concomitant]
     Indication: AGITATION
     Dosage: 2 INJ, TWICE
     Route: 065
     Dates: start: 20060630
  7. MIDAZOLAM HCL [Concomitant]
     Dosage: 3 INJ, DAILY
     Route: 065
     Dates: start: 20060629, end: 20060629
  8. MIDAZOLAM HCL [Concomitant]
     Dosage: 3 INJ, DAILY
     Route: 065
     Dates: start: 20060628, end: 20060628

REACTIONS (4)
  - AGITATION [None]
  - COMA [None]
  - DEATH [None]
  - PAIN [None]
